FAERS Safety Report 14778424 (Version 1)
Quarter: 2018Q2

REPORT INFORMATION
  Report Type: Report from Study
  Country: AU (occurrence: AU)
  Receive Date: 20180419
  Receipt Date: 20180419
  Transmission Date: 20180711
  Serious: Yes (Other)
  Sender: FDA-Public Use
  Company Number: AU-MYLANLABS-2016M1041940

PATIENT
  Age: 16 Year
  Sex: Male

DRUGS (1)
  1. CLOZARIL [Suspect]
     Active Substance: CLOZAPINE
     Indication: SCHIZOPHRENIA
     Dosage: 250 MG, UNK
     Route: 048
     Dates: start: 20140116

REACTIONS (25)
  - Alanine aminotransferase increased [Not Recovered/Not Resolved]
  - Blood lactate dehydrogenase increased [Not Recovered/Not Resolved]
  - Blood uric acid increased [Not Recovered/Not Resolved]
  - Blood cholesterol increased [Unknown]
  - Antipsychotic drug level decreased [Not Recovered/Not Resolved]
  - Blood calcium increased [Unknown]
  - Blood triglycerides increased [Unknown]
  - C-reactive protein decreased [Unknown]
  - Mean cell volume decreased [Not Recovered/Not Resolved]
  - Blood glucose increased [Not Recovered/Not Resolved]
  - Thalassaemia [Unknown]
  - Neutrophil count increased [Recovered/Resolved]
  - Eosinophil count decreased [Not Recovered/Not Resolved]
  - Anion gap increased [Recovering/Resolving]
  - Haemoglobinopathy [Unknown]
  - Gamma-glutamyltransferase increased [Recovered/Resolved]
  - White blood cell count increased [Recovered/Resolved]
  - Aspartate aminotransferase increased [Not Recovered/Not Resolved]
  - Red blood cell count increased [Not Recovered/Not Resolved]
  - Iron deficiency [Unknown]
  - Mean cell haemoglobin decreased [Recovering/Resolving]
  - Lymphocyte count decreased [Not Recovered/Not Resolved]
  - Blood chloride increased [Unknown]
  - Blood bicarbonate decreased [Unknown]
  - Product use issue [Unknown]

NARRATIVE: CASE EVENT DATE: 20140116
